FAERS Safety Report 19786534 (Version 4)
Quarter: 2021Q4

REPORT INFORMATION
  Report Type: Report from Study
  Country: US (occurrence: US)
  Receive Date: 20210903
  Receipt Date: 20211011
  Transmission Date: 20220303
  Serious: Yes (Death, Hospitalization)
  Sender: FDA-Public Use
  Company Number: NVSC2021US198035

PATIENT
  Age: 68 Year
  Sex: Female
  Weight: 44.3 kg

DRUGS (3)
  1. LAMPRENE [Suspect]
     Active Substance: CLOFAZIMINE
     Indication: Mycobacterium avium complex infection
     Dosage: 100 MG
     Route: 048
     Dates: start: 20210409, end: 20210827
  2. LAMPRENE [Suspect]
     Active Substance: CLOFAZIMINE
     Dosage: 100 MG
     Route: 048
     Dates: start: 20210907, end: 20210914
  3. TYGACIL [Concomitant]
     Active Substance: TIGECYCLINE
     Indication: Product used for unknown indication
     Dosage: 50 MG
     Route: 065
     Dates: start: 20210905

REACTIONS (7)
  - Bronchiectasis [Fatal]
  - Hypophagia [Not Recovered/Not Resolved]
  - Confusional state [Recovered/Resolved]
  - Sepsis [Recovered/Resolved]
  - Neutrophil count increased [Unknown]
  - White blood cell count increased [Unknown]
  - Malnutrition [Unknown]

NARRATIVE: CASE EVENT DATE: 20210827
